FAERS Safety Report 23062583 (Version 2)
Quarter: 2023Q4

REPORT INFORMATION
  Report Type: Spontaneous
  Country: NO (occurrence: NO)
  Receive Date: 20231013
  Receipt Date: 20231016
  Transmission Date: 20240109
  Serious: Yes (Hospitalization, Other)
  Sender: FDA-Public Use
  Company Number: None

PATIENT
  Age: 34 Year
  Sex: Female
  Weight: 63 kg

DRUGS (7)
  1. NASONEX [Interacting]
     Active Substance: MOMETASONE FUROATE
     Dosage: UNK
  2. DESOGESTREL [Interacting]
     Active Substance: DESOGESTREL
     Dosage: UNK
  3. METHOTREXATE SODIUM [Interacting]
     Active Substance: METHOTREXATE SODIUM
     Dosage: UNK
  4. RAMIPRIL [Interacting]
     Active Substance: RAMIPRIL
     Indication: Cardiac failure
     Dosage: 5 MILLIGRAM, Q12H
     Dates: start: 2022
  5. ALVESCO [Interacting]
     Active Substance: CICLESONIDE
     Dosage: UNK
  6. SOTALOL [Interacting]
     Active Substance: SOTALOL
     Dosage: UNK
  7. INSPRA [Interacting]
     Active Substance: EPLERENONE
     Indication: Cardiac failure
     Dosage: 12.5 MILLIGRAM, QD
     Route: 048
     Dates: start: 20230920

REACTIONS (4)
  - Disorientation [Recovering/Resolving]
  - Akathisia [Recovering/Resolving]
  - Poisoning [Recovering/Resolving]
  - Drug interaction [Recovering/Resolving]

NARRATIVE: CASE EVENT DATE: 20230926
